FAERS Safety Report 24396288 (Version 1)
Quarter: 2024Q4

REPORT INFORMATION
  Report Type: Spontaneous
  Country: US (occurrence: None)
  Receive Date: 20241003
  Receipt Date: 20241003
  Transmission Date: 20250114
  Serious: Yes (Hospitalization)
  Sender: Public
  Company Number: None

PATIENT
  Sex: Female

DRUGS (4)
  1. OPSUMIT [Suspect]
     Active Substance: MACITENTAN
     Indication: Pulmonary arterial hypertension
     Dosage: FREQUENCY : DAILY;?
     Route: 048
     Dates: start: 202105
  2. ADCIRCA [Concomitant]
     Active Substance: TADALAFIL
  3. WINREVAIR [Concomitant]
     Active Substance: SOTATERCEPT-CSRK
  4. REMODULIN [Concomitant]

REACTIONS (4)
  - Atrial fibrillation [None]
  - Diarrhoea [None]
  - Abdominal discomfort [None]
  - Abdominal pain [None]

NARRATIVE: CASE EVENT DATE: 20240925
